FAERS Safety Report 8444539-0 (Version None)
Quarter: 2012Q2

REPORT INFORMATION
  Report Type: 
  Country: None (occurrence: None)
  Receive Date: 20120611
  Receipt Date: 20120508
  Transmission Date: 20120825
  Serious: Yes (Hospitalization)
  Sender: FDA-Public Use
  Company Number: 2012SP030676

PATIENT
  Age: 52 Year
  Sex: Female

DRUGS (2)
  1. RIBAVIRIN [Suspect]
     Indication: HEPATITIS C
     Dosage: 1.2;1.0 GM, QD, UNK
  2. PEGINTERFERON ALFA-2B [Suspect]
     Indication: HEPATITIS C
     Dosage: 150 MCG, QW, UNK

REACTIONS (6)
  - ANAEMIA [None]
  - TRISMUS [None]
  - PALLOR [None]
  - TONSILLITIS [None]
  - HYPERTHYROIDISM [None]
  - MOUTH ULCERATION [None]
